FAERS Safety Report 24968178 (Version 2)
Quarter: 2025Q1

REPORT INFORMATION
  Report Type: Spontaneous
  Country: US (occurrence: US)
  Receive Date: 20250214
  Receipt Date: 20250217
  Transmission Date: 20250408
  Serious: No
  Sender: SANDOZ
  Company Number: US-002147023-NVSC2025US005854

PATIENT
  Age: 60 Year
  Sex: Female
  Weight: 64.4 kg

DRUGS (4)
  1. AZITHROMYCIN [Suspect]
     Active Substance: AZITHROMYCIN
     Indication: Mycobacterium avium complex infection
     Dosage: 250 MG, QD
     Route: 048
     Dates: start: 20241115
  2. CLOFAZIMINE [Suspect]
     Active Substance: CLOFAZIMINE
     Indication: Mycobacterium avium complex infection
     Dosage: 100 MG, QD
     Route: 048
     Dates: start: 20241106
  3. CLOFAZIMINE [Suspect]
     Active Substance: CLOFAZIMINE
     Dosage: 100 MG, QD
     Route: 048
     Dates: start: 20241128
  4. ETHAMBUTOL [Suspect]
     Active Substance: ETHAMBUTOL HYDROCHLORIDE
     Indication: Mycobacterium avium complex infection
     Dosage: 1000 MG, QD
     Route: 048
     Dates: start: 20241115

REACTIONS (10)
  - Pain in jaw [Recovering/Resolving]
  - Oral pain [Recovering/Resolving]
  - Ear pain [Recovering/Resolving]
  - Mouth swelling [Recovering/Resolving]
  - Ear swelling [Recovering/Resolving]
  - Aphthous ulcer [Recovered/Resolved]
  - Abdominal discomfort [Not Recovered/Not Resolved]
  - Diarrhoea [Not Recovered/Not Resolved]
  - Palpitations [Not Recovered/Not Resolved]
  - Swelling face [Recovering/Resolving]

NARRATIVE: CASE EVENT DATE: 20241128
